FAERS Safety Report 25816104 (Version 1)
Quarter: 2025Q3

REPORT INFORMATION
  Report Type: Spontaneous
  Country: GB (occurrence: GB)
  Receive Date: 20250918
  Receipt Date: 20250918
  Transmission Date: 20251020
  Serious: Yes (Other)
  Sender: TEVA
  Company Number: GB-MHRA-TPP42002658C3280306YC1758016260835

PATIENT
  Age: 74 Year
  Sex: Female
  Weight: 58 kg

DRUGS (6)
  1. AMLODIPINE [Suspect]
     Active Substance: AMLODIPINE BESYLATE
     Indication: Product used for unknown indication
     Dosage: DAILY DOSAGE: 10MG
     Route: 065
     Dates: start: 20250623
  2. FLUOROURACIL [Concomitant]
     Active Substance: FLUOROURACIL
     Indication: Product used for unknown indication
     Dates: start: 20250626, end: 20250724
  3. ZOLMITRIPTAN [Concomitant]
     Active Substance: ZOLMITRIPTAN
     Indication: Product used for unknown indication
     Dates: start: 20250519
  4. PROPRANOLOL [Concomitant]
     Active Substance: PROPRANOLOL HYDROCHLORIDE
     Indication: Product used for unknown indication
     Dosage: DAILY DOSAGE: 1 DOSAGE FORM
     Dates: start: 20240801
  5. DELOFINE [Concomitant]
     Indication: Product used for unknown indication
     Dosage: DAILY DOSAGE: 1 DOSAGE FORM
  6. BENDROFLUMETHIAZIDE [Concomitant]
     Active Substance: BENDROFLUMETHIAZIDE
     Indication: Hypertension
     Dosage: DAILY DOSAGE: 1 DOSAGE FORM; IN THE MORNING (BP)
     Dates: start: 20240801, end: 20250626

REACTIONS (1)
  - Joint swelling [Not Recovered/Not Resolved]
